FAERS Safety Report 19996856 (Version 1)
Quarter: 2021Q4

REPORT INFORMATION
  Report Type: Spontaneous
  Country: US (occurrence: US)
  Receive Date: 20211026
  Receipt Date: 20211026
  Transmission Date: 20220303
  Serious: Yes (Hospitalization)
  Sender: FDA-Public Use
  Company Number: US-UNICHEM PHARMACEUTICALS (USA) INC-UCM202110-000967

PATIENT
  Age: 52 Year
  Sex: Male

DRUGS (1)
  1. AMLODIPINE [Suspect]
     Active Substance: AMLODIPINE BESYLATE
     Indication: Overdose
     Dosage: OVERDOSE WITH TOTAL 750MG

REACTIONS (4)
  - Acute respiratory distress syndrome [Recovering/Resolving]
  - Hypoxia [Recovering/Resolving]
  - Shock [Recovering/Resolving]
  - Intentional overdose [Unknown]
